FAERS Safety Report 10214552 (Version 1)
Quarter: 2014Q2

REPORT INFORMATION
  Report Type: Spontaneous
  Country: US (occurrence: US)
  Receive Date: 20140603
  Receipt Date: 20140603
  Transmission Date: 20141212
  Serious: Yes (Hospitalization)
  Sender: FDA-Public Use
  Company Number: US-GLAXOSMITHKLINE-A1074952A

PATIENT
  Age: 54 Year
  Sex: Female

DRUGS (29)
  1. ADVAIR HFA [Suspect]
     Indication: CHRONIC OBSTRUCTIVE PULMONARY DISEASE
     Dosage: 1PUFF TWICE PER DAY
     Route: 055
  2. FLONASE [Suspect]
     Indication: INFECTION PROPHYLAXIS
     Dosage: 1SPR PER DAY
     Route: 045
  3. VENTOLIN [Suspect]
     Indication: WHEEZING
     Route: 055
  4. PRO-AIR [Concomitant]
  5. SPIRIVA [Concomitant]
  6. LANTUS [Concomitant]
  7. ASPIRIN [Concomitant]
  8. BIOFREEZE TOPICAL [Concomitant]
  9. WELLBUTRIN XL [Concomitant]
  10. CENTRUM SILVER [Concomitant]
  11. CLOPIDOGREL [Concomitant]
  12. TRAMADOL [Concomitant]
  13. VALIUM [Concomitant]
  14. BENADRYL [Concomitant]
  15. CORTISPORIN [Concomitant]
  16. NEXIUM [Concomitant]
  17. ZETIA [Concomitant]
  18. TOVIAZ [Concomitant]
  19. LASIX [Concomitant]
  20. NEURONTIN [Concomitant]
  21. AMARYL [Concomitant]
  22. VICODIN [Concomitant]
  23. LEVOTHYROXINE [Concomitant]
  24. LIDOCAINE [Concomitant]
  25. METOPROLOL TARTRATE [Concomitant]
  26. SIMVASTATIN [Concomitant]
  27. VITAMIN D [Concomitant]
  28. FISH OIL [Concomitant]
  29. MILK THISTLE [Concomitant]

REACTIONS (7)
  - Myocardial infarction [Recovering/Resolving]
  - Pneumonia [Recovering/Resolving]
  - Pneumonia aspiration [Recovering/Resolving]
  - Pulmonary hypertension [Recovering/Resolving]
  - Fall [Recovering/Resolving]
  - Upper limb fracture [Recovering/Resolving]
  - Pain in extremity [Recovering/Resolving]
